FAERS Safety Report 5968704-7 (Version None)
Quarter: 2008Q4

REPORT INFORMATION
  Report Type: 
  Country: None (occurrence: None)
  Receive Date: 20081126
  Receipt Date: 20081124
  Transmission Date: 20090506
  Serious: Yes (Other)
  Sender: FDA-Public Use
  Company Number: US-JNJFOC-20080706786

PATIENT
  Age: 82 Year
  Sex: Male
  Weight: 70.31 kg

DRUGS (3)
  1. RAZADYNE [Suspect]
     Indication: DEMENTIA
     Route: 048
  2. NAMENDA [Suspect]
     Indication: DEMENTIA
     Route: 048
  3. TRIAMTERENE [Concomitant]
     Indication: HYPERTENSION
     Route: 048

REACTIONS (5)
  - ABNORMAL DREAMS [None]
  - FEELING ABNORMAL [None]
  - HEADACHE [None]
  - MIDDLE INSOMNIA [None]
  - UNDERDOSE [None]
